FAERS Safety Report 7112041-4 (Version None)
Quarter: 2010Q4

REPORT INFORMATION
  Report Type: 
  Country: None (occurrence: None)
  Receive Date: 20101119
  Receipt Date: 20101116
  Transmission Date: 20110411
  Serious: Yes (Disabling, Other)
  Sender: FDA-Public Use
  Company Number: US-PFIZER INC-2010094499

PATIENT
  Sex: Female

DRUGS (4)
  1. CHANTIX [Suspect]
     Indication: SMOKING CESSATION THERAPY
     Dosage: SAMPLE STARTER PACK UNK
     Route: 048
     Dates: start: 20060101
  2. SEROQUEL [Concomitant]
     Indication: INSOMNIA
     Dosage: 50 MG, UNK
     Dates: start: 20030101
  3. CLONIDINE [Concomitant]
     Indication: INSOMNIA
     Dosage: 0.4 MG, UNK
     Dates: start: 20030101
  4. CYMBALTA [Concomitant]
     Indication: DEPRESSION
     Dosage: UNK
     Dates: start: 20070101, end: 20090101

REACTIONS (5)
  - AMNESIA [None]
  - ANXIETY [None]
  - DEPRESSION [None]
  - ROAD TRAFFIC ACCIDENT [None]
  - SUICIDE ATTEMPT [None]
